FAERS Safety Report 8550825 (Version 2)
Quarter: 2015Q2

REPORT INFORMATION
  Report Type: Spontaneous
  Country: US (occurrence: US)
  Receive Date: 20120508
  Receipt Date: 20150401
  Transmission Date: 20150821
  Serious: No
  Sender: FDA-Public Use
  Company Number: US-PFIZER INC-2012108773

PATIENT
  Age: 58 Year
  Sex: Female

DRUGS (1)
  1. SUTENT [Suspect]
     Active Substance: SUNITINIB MALATE
     Indication: CARCINOID TUMOUR
     Dosage: 50 MG, UNK
     Dates: start: 20120104

REACTIONS (3)
  - Carcinoid tumour [Unknown]
  - Product use issue [Unknown]
  - Disease progression [Unknown]
